FAERS Safety Report 6146774-3 (Version None)
Quarter: 2009Q2

REPORT INFORMATION
  Report Type: 
  Country: None (occurrence: None)
  Receive Date: 20090403
  Receipt Date: 20090403
  Transmission Date: 20091009
  Serious: Yes (Other)
  Sender: FDA-Public Use
  Company Number: None

PATIENT
  Sex: Male
  Weight: 73.9363 kg

DRUGS (1)
  1. CIPROFLOXACIN [Suspect]
     Indication: URETHRITIS
     Dosage: 1 PILL TWICE DAILY PO
     Route: 048
     Dates: start: 20090330, end: 20090331

REACTIONS (3)
  - MYALGIA [None]
  - TENSION [None]
  - URETHRITIS [None]
